FAERS Safety Report 8505131-2 (Version None)
Quarter: 2012Q3

REPORT INFORMATION
  Report Type: 
  Country: None (occurrence: None)
  Receive Date: 20120712
  Receipt Date: 20120703
  Transmission Date: 20120928
  Serious: Yes (Hospitalization)
  Sender: FDA-Public Use
  Company Number: US-CELGENEUS-163-21880-12070598

PATIENT
  Sex: Female

DRUGS (3)
  1. REVLIMID [Suspect]
     Indication: MULTIPLE MYELOMA
     Dosage: 11.25 MILLIGRAM
     Route: 048
     Dates: start: 20090806, end: 20100101
  2. REVLIMID [Suspect]
     Dosage: 11.25 MILLIGRAM
     Route: 048
     Dates: start: 20120627
  3. REVLIMID [Suspect]
     Dosage: 11.25 MILLIGRAM
     Route: 048
     Dates: start: 20110501, end: 20110101

REACTIONS (3)
  - RENAL FAILURE ACUTE [None]
  - MULTIPLE MYELOMA [None]
  - HYPERCALCAEMIA [None]
